FAERS Safety Report 5082587-1 (Version None)
Quarter: 2006Q3

REPORT INFORMATION
  Report Type: 
  Country: None (occurrence: None)
  Receive Date: 20060814
  Receipt Date: 20060802
  Transmission Date: 20061208
  Serious: No
  Sender: FDA-Public Use
  Company Number: 228232

PATIENT
  Age: 4 Year
  Sex: Male

DRUGS (1)
  1. NUTROPIN AQ [Suspect]
     Indication: FOETAL GROWTH RETARDATION
     Dosage: 0.8 MG, 7/WEEK, SUBCUTANEOUS
     Route: 058
     Dates: start: 20040219

REACTIONS (2)
  - OTITIS MEDIA CHRONIC [None]
  - TONSILLAR HYPERTROPHY [None]
